FAERS Safety Report 13961412 (Version 1)
Quarter: 2017Q3

REPORT INFORMATION
  Report Type: Spontaneous
  Country: US (occurrence: US)
  Receive Date: 20170912
  Receipt Date: 20170912
  Transmission Date: 20171128
  Serious: No
  Sender: FDA-Public Use
  Company Number: US-LEXICON PHARMACEUTICALS, INC-17-1606-00792

PATIENT
  Age: 51 Year
  Sex: Female

DRUGS (13)
  1. TELOTRISTAT ETHYL [Suspect]
     Active Substance: TELOTRISTAT ETHYL
     Indication: CARCINOID SYNDROME
     Route: 048
     Dates: start: 20170510
  2. SANDOSTATIN LAR DEPOT [Concomitant]
     Active Substance: OCTREOTIDE ACETATE
  3. VIACTIV [Concomitant]
     Active Substance: CALCIUM\VITAMIN D\VITAMIN K5
  4. PROCHLORPERAZINE. [Concomitant]
     Active Substance: PROCHLORPERAZINE
  5. MIRALAX [Concomitant]
     Active Substance: POLYETHYLENE GLYCOL 3350
  6. LOPERAMIDE [Concomitant]
     Active Substance: LOPERAMIDE
  7. MULTIVITAMIN [Concomitant]
     Active Substance: VITAMINS
  8. CREON [Concomitant]
     Active Substance: PANCRELIPASE AMYLASE\PANCRELIPASE LIPASE\PANCRELIPASE PROTEASE
  9. IBUPROFEN. [Concomitant]
     Active Substance: IBUPROFEN
  10. HYOSCYAMINE. [Concomitant]
     Active Substance: HYOSCYAMINE
  11. ONDANSETRON [Concomitant]
     Active Substance: ONDANSETRON
  12. CAPECITABINE. [Concomitant]
     Active Substance: CAPECITABINE
  13. TEMOZOLOMIDE. [Concomitant]
     Active Substance: TEMOZOLOMIDE

REACTIONS (3)
  - Tricuspid valve disease [Unknown]
  - Serum serotonin increased [Not Recovered/Not Resolved]
  - 5-hydroxyindolacetic acid in urine [Not Recovered/Not Resolved]

NARRATIVE: CASE EVENT DATE: 20170531
